FAERS Safety Report 10129242 (Version 2)
Quarter: 2015Q1

REPORT INFORMATION
  Report Type: Other
  Country: None (occurrence: US)
  Receive Date: 20140428
  Receipt Date: 20150131
  Transmission Date: 20150720
  Serious: Yes (Hospitalization, Other)
  Sender: FDA-Public Use
  Company Number: US-GSKPPD-2014GSK031670

PATIENT
  Age: 90 Year
  Sex: Female

DRUGS (7)
  1. AVANDIA [Suspect]
     Active Substance: ROSIGLITAZONE MALEATE
     Indication: DIABETES MELLITUS
     Route: 048
     Dates: end: 201001
  2. LISINOPRIL. [Concomitant]
     Active Substance: LISINOPRIL
  3. ASPIRIN. [Concomitant]
     Active Substance: ASPIRIN
  4. AVANDAMET [Suspect]
     Active Substance: METFORMIN HYDROCHLORIDE\ROSIGLITAZONE MALEATE
     Indication: DIABETES MELLITUS
     Dosage: DATES OF AVANDAMET USE COULD NOT BE CONFIRMED IN RECORDS REVIEWED.
  5. NITROGLYCERIN. [Concomitant]
     Active Substance: NITROGLYCERIN
  6. METOPROLOL [Concomitant]
     Active Substance: METOPROLOL
  7. SIMVASTATIN. [Concomitant]
     Active Substance: SIMVASTATIN

REACTIONS (1)
  - Acute myocardial infarction [Recovered/Resolved]

NARRATIVE: CASE EVENT DATE: 20100116
